FAERS Safety Report 5561071-2 (Version None)
Quarter: 2007Q4

REPORT INFORMATION
  Report Type: 
  Country: None (occurrence: None)
  Receive Date: 20071215
  Receipt Date: 20071031
  Transmission Date: 20080405
  Serious: No
  Sender: FDA-Public Use
  Company Number: US-AMGEN-KDL249060

PATIENT
  Sex: Female

DRUGS (2)
  1. ENBREL [Suspect]
     Indication: PSORIATIC ARTHROPATHY
     Route: 058
     Dates: start: 20030801
  2. SULFASALAZINE [Concomitant]

REACTIONS (5)
  - BRONCHITIS [None]
  - DIARRHOEA [None]
  - HAEMATEMESIS [None]
  - LOSS OF CONSCIOUSNESS [None]
  - VESSEL PUNCTURE SITE HAEMATOMA [None]
